FAERS Safety Report 9320471 (Version 1)
Quarter: 2013Q2

REPORT INFORMATION
  Report Type: Spontaneous
  Country: ES (occurrence: ES)
  Receive Date: 20130530
  Receipt Date: 20130530
  Transmission Date: 20140414
  Serious: Yes (Hospitalization, Other)
  Sender: FDA-Public Use
  Company Number: ES-ELI_LILLY_AND_COMPANY-ES201305007712

PATIENT
  Age: 79 Year
  Sex: Female
  Weight: 106 kg

DRUGS (8)
  1. FORSTEO [Suspect]
     Indication: OSTEOPOROSIS
     Dosage: 20 UG, QD
     Route: 058
     Dates: start: 20110909
  2. OMEPRAZOL [Concomitant]
     Indication: GASTRIC DISORDER
     Dosage: 1 DF, QD
     Route: 048
  3. ENALAPRIL [Concomitant]
     Indication: HYPERTENSION
     Dosage: 1 DF, QD
     Route: 048
  4. CARVEDILOL [Concomitant]
     Indication: CARDIAC DISORDER
     Dosage: 1 DF, QD
     Route: 048
  5. SIMVASTATIN [Concomitant]
     Indication: BLOOD CHOLESTEROL ABNORMAL
     Dosage: 1 DF, QD
     Route: 048
  6. LOSARTAN [Concomitant]
     Dosage: 1 DF, QD
     Route: 048
  7. NOLOTIL [Concomitant]
     Indication: ANALGESIC THERAPY
     Dosage: 1 DF, EVERY 8 HRS
     Route: 048
  8. IVOR [Concomitant]
     Indication: INFECTION
     Dosage: 1 DF, QD
     Route: 058

REACTIONS (6)
  - Upper limb fracture [Not Recovered/Not Resolved]
  - Device issue [Unknown]
  - Cerebrovascular accident [Unknown]
  - Wrist fracture [Unknown]
  - Injury [Unknown]
  - Haematoma [Unknown]
